FAERS Safety Report 9304809 (Version 1)
Quarter: 2013Q2

REPORT INFORMATION
  Report Type: Spontaneous
  Country: PR (occurrence: None)
  Receive Date: 20130521
  Receipt Date: 20130521
  Transmission Date: 20140414
  Serious: Yes (Other)
  Sender: FDA-Public Use
  Company Number: 2013P1005851

PATIENT
  Age: 74 Year
  Sex: Female

DRUGS (11)
  1. AMIODARONE [Suspect]
     Indication: ATRIAL FIBRILLATION
     Route: 042
  2. SIMVASTATN (CON.) [Concomitant]
  3. ENALAPRIL (CON.) [Concomitant]
  4. LEVOTHYROXINE(CON.) [Concomitant]
  5. UNSPECIFIED CORTICOSTEROIDS (CON.) [Concomitant]
  6. UNSPECIFIED SHORT-ACTING BETA AGONISTS(CON.) [Concomitant]
  7. DILTIAZEM(CON.) [Concomitant]
  8. LOVENOX(CON.) [Concomitant]
  9. COUMADIN(CON.) [Concomitant]
  10. UNSPECIFIED INTRAVENOUS ANTIBIOTIC(CON.) [Concomitant]
  11. UNSPECIFIED STEROID(CON.) [Concomitant]

REACTIONS (6)
  - Disorientation [None]
  - Amnesia [None]
  - Hyponatraemia [None]
  - Inappropriate antidiuretic hormone secretion [None]
  - Hypothyroidism [None]
  - Drug interaction [None]
